FAERS Safety Report 8583317-9 (Version None)
Quarter: 2012Q3

REPORT INFORMATION
  Report Type: 
  Country: None (occurrence: None)
  Receive Date: 20120809
  Receipt Date: 20120801
  Transmission Date: 20120928
  Serious: Yes (Hospitalization, Other)
  Sender: FDA-Public Use
  Company Number: US-ABBOTT-12P-163-0959363-00

PATIENT
  Age: 35 Year
  Sex: Female

DRUGS (3)
  1. HUMIRA [Suspect]
     Dates: start: 20120501
  2. COUMADIN [Concomitant]
     Indication: THROMBOSIS
     Dosage: 7.5MG - 10MG QD
  3. HUMIRA [Suspect]
     Indication: CROHN'S DISEASE
     Dates: start: 20110201, end: 20120201

REACTIONS (17)
  - ADHESION [None]
  - GASTROOESOPHAGEAL REFLUX DISEASE [None]
  - INTRA-ABDOMINAL HAEMORRHAGE [None]
  - PROCTITIS [None]
  - BIPOLAR DISORDER [None]
  - NAUSEA [None]
  - PRODUCTIVE COUGH [None]
  - COLITIS [None]
  - LAPAROTOMY [None]
  - ILEOSTOMY [None]
  - DEPRESSION [None]
  - BRONCHITIS [None]
  - INTESTINAL DILATATION [None]
  - POUCHITIS [None]
  - POST-TRAUMATIC STRESS DISORDER [None]
  - VOMITING [None]
  - ABDOMINAL PAIN [None]
